FAERS Safety Report 8821747 (Version 1)
Quarter: 2012Q4

REPORT INFORMATION
  Report Type: 
  Country: US (occurrence: US)
  Receive Date: 20121002
  Receipt Date: 20121002
  Transmission Date: 20130627
  Serious: No
  Sender: FDA-Public Use
  Company Number: US-009507513-1210USA000778

PATIENT
  Sex: Male

DRUGS (1)
  1. JANUMET [Suspect]
     Dosage: 1 DF, qd
     Route: 048

REACTIONS (16)
  - Pain in extremity [Unknown]
  - Abdominal pain upper [Unknown]
  - Hypersomnia [Unknown]
  - Fatigue [Unknown]
  - Pollakiuria [Unknown]
  - Peripheral coldness [Unknown]
  - Asthenia [Unknown]
  - Muscular weakness [Unknown]
  - Drug ineffective [Unknown]
  - Abdominal discomfort [Unknown]
  - Nervousness [Unknown]
  - Dehydration [Unknown]
  - Dizziness [Unknown]
  - Headache [Unknown]
  - Arthralgia [Unknown]
  - Muscle spasms [Unknown]
